FAERS Safety Report 12564183 (Version 1)
Quarter: 2016Q3

REPORT INFORMATION
  Report Type: Spontaneous
  Country: US (occurrence: US)
  Receive Date: 20160718
  Receipt Date: 20160718
  Transmission Date: 20161109
  Serious: Yes (Hospitalization)
  Sender: FDA-Public Use
  Company Number: US-DEPOMED, INC.-US-2016DEP009726

PATIENT

DRUGS (2)
  1. GRALISE [Suspect]
     Active Substance: GABAPENTIN
     Indication: PAIN
     Dosage: 1800 MG, QD WITH EVENING MEAL
     Dates: start: 20160516
  2. GRALISE [Suspect]
     Active Substance: GABAPENTIN
     Indication: BACK PAIN
     Dosage: 300 MG ONCE DAILY, TITRATED UP TO 1200 MG
     Route: 048
     Dates: start: 20160506, end: 20160516

REACTIONS (8)
  - Dizziness [Unknown]
  - Off label use [Unknown]
  - Oxygen saturation decreased [Unknown]
  - Confusional state [Unknown]
  - Dehydration [Unknown]
  - Medication error [Unknown]
  - Gait disturbance [Not Recovered/Not Resolved]
  - Dyspnoea [Unknown]

NARRATIVE: CASE EVENT DATE: 201605
